FAERS Safety Report 13117668 (Version 6)
Quarter: 2017Q2

REPORT INFORMATION
  Report Type: Spontaneous
  Country: CA (occurrence: CA)
  Receive Date: 20170116
  Receipt Date: 20170426
  Transmission Date: 20170830
  Serious: Yes (Other)
  Sender: FDA-Public Use
  Company Number: CA-GLAXOSMITHKLINE-CA2016GSK149064

PATIENT
  Age: 53 Year
  Sex: Male

DRUGS (6)
  1. NUCALA [Suspect]
     Active Substance: MEPOLIZUMAB
     Dosage: UNK
  2. NUCALA [Suspect]
     Active Substance: MEPOLIZUMAB
     Dosage: UNK
     Dates: start: 20170209
  3. NUCALA [Suspect]
     Active Substance: MEPOLIZUMAB
     Dosage: 100 UNK, UNK
     Dates: start: 20170320
  4. SALINE NASAL RINSE [Concomitant]
     Indication: SINUSITIS
     Dosage: UNK
  5. NUCALA [Suspect]
     Active Substance: MEPOLIZUMAB
     Indication: ASTHMA
     Dosage: 100 MG, Z
     Route: 042
     Dates: start: 20160829
  6. NUCALA [Suspect]
     Active Substance: MEPOLIZUMAB
     Dosage: UNK
     Route: 042

REACTIONS (12)
  - Palpitations [Not Recovered/Not Resolved]
  - Circumstance or information capable of leading to medication error [Unknown]
  - Blood pressure increased [Unknown]
  - Calcinosis [Unknown]
  - Sinus operation [Unknown]
  - Influenza like illness [Not Recovered/Not Resolved]
  - Ear operation [Unknown]
  - Inner ear disorder [Unknown]
  - Body temperature decreased [Unknown]
  - Deafness [Unknown]
  - Sinus disorder [Unknown]
  - Viral upper respiratory tract infection [Not Recovered/Not Resolved]

NARRATIVE: CASE EVENT DATE: 20161208
